FAERS Safety Report 25832435 (Version 3)
Quarter: 2025Q4

REPORT INFORMATION
  Report Type: Spontaneous
  Country: JP (occurrence: JP)
  Receive Date: 20250922
  Receipt Date: 20251126
  Transmission Date: 20260117
  Serious: Yes (Hospitalization)
  Sender: BAYER HEALTHCARE PHARMACEUTICALS INC.
  Company Number: JP-BAYER-2025A124482

PATIENT
  Age: 40 Year
  Sex: Female

DRUGS (1)
  1. MIRENA [Suspect]
     Active Substance: LEVONORGESTREL
     Indication: Dysmenorrhoea
     Dosage: 20?G/DAY
     Route: 015
     Dates: start: 202501, end: 202503

REACTIONS (3)
  - Adnexal torsion [Recovering/Resolving]
  - Ovarian cyst [None]
  - Ovarian enlargement [None]

NARRATIVE: CASE EVENT DATE: 20250301
